FAERS Safety Report 23952887 (Version 1)
Quarter: 2024Q2

REPORT INFORMATION
  Report Type: Spontaneous
  Country: US (occurrence: US)
  Receive Date: 20240607
  Receipt Date: 20240607
  Transmission Date: 20240717
  Serious: No
  Sender: FDA-Public Use
  Company Number: US-ABBVIE-5792752

PATIENT

DRUGS (1)
  1. RESTASIS [Suspect]
     Active Substance: CYCLOSPORINE
     Indication: Product used for unknown indication
     Dosage: FORM STRENGTH- CYCLOSPORINE 0.5MG/ML EML
     Route: 047

REACTIONS (2)
  - Product storage error [Unknown]
  - Poor quality product administered [Unknown]
